FAERS Safety Report 5362840-4 (Version None)
Quarter: 2007Q2

REPORT INFORMATION
  Report Type: 
  Country: None (occurrence: None)
  Receive Date: 20070612
  Receipt Date: 20070529
  Transmission Date: 20071010
  Serious: Yes (Death)
  Sender: FDA-Public Use
  Company Number: 156909ISR

PATIENT
  Age: 77 Year
  Sex: Female

DRUGS (4)
  1. PACLITAXEL [Suspect]
     Dosage: ?? (100 MG, CYCLICAL) INTRAVENOUS (NOT OTHERWISE SPECIFIED)
     Route: 042
     Dates: start: 20070216, end: 20070216
  2. CARBOPLATIN [Suspect]
     Dosage: ?? (299 MG, CYCLICAL) INTRAVENOUS (NOT OTHERWISE SPECIFIED)
     Route: 042
     Dates: start: 20070216, end: 20070216
  3. ONDANSETRON HCL [Concomitant]
  4. DEXAMETHASONE 0.5MG TAB [Concomitant]

REACTIONS (6)
  - DIARRHOEA [None]
  - HYPOCALCAEMIA [None]
  - HYPOKALAEMIA [None]
  - HYPOMAGNESAEMIA [None]
  - HYPONATRAEMIA [None]
  - VOMITING [None]
